FAERS Safety Report 8473034-8 (Version None)
Quarter: 2012Q2

REPORT INFORMATION
  Report Type: 
  Country: None (occurrence: None)
  Receive Date: 20120627
  Receipt Date: 20120617
  Transmission Date: 20120825
  Serious: Yes (Hospitalization)
  Sender: FDA-Public Use
  Company Number: US-JNJFOC-20120609812

PATIENT
  Sex: Male
  Weight: 34.2 kg

DRUGS (2)
  1. TYSABRI [Concomitant]
  2. REMICADE [Suspect]
     Indication: INFLAMMATORY BOWEL DISEASE
     Route: 042
     Dates: start: 20020525

REACTIONS (1)
  - COLONIC STENOSIS [None]
